FAERS Safety Report 4324469-6 (Version None)
Quarter: 2004Q1

REPORT INFORMATION
  Report Type: 
  Country: None (occurrence: None)
  Receive Date: 20040326
  Receipt Date: 20040218
  Transmission Date: 20041129
  Serious: No
  Sender: FDA-Public Use
  Company Number: US-GLAXOSMITHKLINE-A0498776A

PATIENT
  Age: 46 Year
  Sex: Female

DRUGS (6)
  1. ADVAIR DISKUS 100/50 [Suspect]
     Dosage: 1PUFF TWICE PER DAY
     Route: 055
     Dates: start: 20030513
  2. ALLEGRA [Concomitant]
  3. SINGULAIR [Concomitant]
  4. ASTELIN [Concomitant]
  5. VIOXX [Concomitant]
  6. ACTONEL [Concomitant]
     Route: 065

REACTIONS (3)
  - DYSGEUSIA [None]
  - GLOSSODYNIA [None]
  - PHARMACEUTICAL PRODUCT COMPLAINT [None]
